FAERS Safety Report 21408258 (Version 1)
Quarter: 2022Q4

REPORT INFORMATION
  Report Type: Spontaneous
  Country: CN (occurrence: CN)
  Receive Date: 20221004
  Receipt Date: 20221004
  Transmission Date: 20230113
  Serious: Yes (Life-Threatening, Other)
  Sender: FDA-Public Use
  Company Number: CN-009507513-2209CHN010846

PATIENT
  Age: 37 Year
  Sex: Male
  Weight: 65 kg

DRUGS (5)
  1. NOXAFIL [Suspect]
     Active Substance: POSACONAZOLE
     Indication: Pneumonia fungal
     Dosage: 10 MILLILITER, TID
     Route: 048
     Dates: start: 20220915, end: 20220924
  2. AMPHOTERICIN B CHOLESTERYL SULFATE [Suspect]
     Active Substance: AMPHOTERICIN B CHOLESTERYL SULFATE
     Indication: Pneumonia fungal
     Dosage: 50 MILLIGRAM, DAILY
     Dates: start: 20220909, end: 20220909
  3. AMPHOTERICIN B CHOLESTERYL SULFATE [Suspect]
     Active Substance: AMPHOTERICIN B CHOLESTERYL SULFATE
     Dosage: 100 MILLIGRAM, DAILY
     Dates: start: 20220910, end: 20220910
  4. AMPHOTERICIN B CHOLESTERYL SULFATE [Suspect]
     Active Substance: AMPHOTERICIN B CHOLESTERYL SULFATE
     Dosage: 150 MILLIGRAM, DAILY
     Dates: start: 20220911, end: 20220924
  5. DEXTROSE [Concomitant]
     Active Substance: DEXTROSE
     Indication: General symptom
     Dosage: 50 MILLILITER, QD
     Dates: start: 20220909, end: 20220924

REACTIONS (1)
  - Hypokalaemia [Recovering/Resolving]

NARRATIVE: CASE EVENT DATE: 20220918
